FAERS Safety Report 23712932 (Version 1)
Quarter: 2024Q2

REPORT INFORMATION
  Report Type: Spontaneous
  Country: CN (occurrence: None)
  Receive Date: 20240405
  Receipt Date: 20240405
  Transmission Date: 20240716
  Serious: Yes (Other)
  Sender: FDA-Public Use
  Company Number: 2024A081645

PATIENT
  Age: 54 Year
  Sex: Female
  Weight: 54 kg

DRUGS (2)
  1. PULMICORT TURBUHALER [Suspect]
     Active Substance: BUDESONIDE
     Indication: Adjuvant therapy
     Route: 055
     Dates: start: 20221122, end: 20221124
  2. TERBUTALINE SULFATE [Suspect]
     Active Substance: TERBUTALINE SULFATE
     Indication: Adjuvant therapy
     Route: 055
     Dates: start: 20221122, end: 20221124

REACTIONS (4)
  - Flushing [Recovering/Resolving]
  - Macule [Recovering/Resolving]
  - Paraesthesia [Recovering/Resolving]
  - Dyspnoea [Unknown]

NARRATIVE: CASE EVENT DATE: 20221124
